FAERS Safety Report 9631962 (Version 1)
Quarter: 2013Q4

REPORT INFORMATION
  Report Type: Spontaneous
  Country: US (occurrence: US)
  Receive Date: 20131018
  Receipt Date: 20131018
  Transmission Date: 20140711
  Serious: No
  Sender: FDA-Public Use
  Company Number: US-ASTELLAS-2013US002724

PATIENT
  Age: 46 Year
  Sex: Male

DRUGS (9)
  1. MYCAMINE [Suspect]
     Indication: COMPLICATIONS OF TRANSPLANT SURGERY
     Dosage: 50 MG, UNKNOWN/D
     Route: 042
     Dates: start: 20121203, end: 20130213
  2. MYCAMINE [Suspect]
     Indication: GRAFT VERSUS HOST DISEASE
  3. MYCAMINE [Suspect]
     Indication: LUNG DISORDER
  4. MYCAMINE [Suspect]
     Indication: EMBOLISM VENOUS
  5. MYCAMINE [Suspect]
     Indication: BACTERAEMIA
  6. MYCAMINE [Suspect]
     Indication: STREPTOCOCCAL INFECTION
  7. MYCAMINE [Suspect]
     Indication: DYSPEPSIA
  8. MYCAMINE [Suspect]
     Indication: HYPOKALAEMIA
  9. MYCAMINE [Suspect]
     Indication: MYOCLONUS

REACTIONS (1)
  - Off label use [Unknown]
